FAERS Safety Report 5286438-1 (Version None)
Quarter: 2007Q2

REPORT INFORMATION
  Report Type: 
  Country: None (occurrence: None)
  Receive Date: 20070404
  Receipt Date: 20070330
  Transmission Date: 20071010
  Serious: No
  Sender: FDA-Public Use
  Company Number: 2006UW11180

PATIENT
  Age: 45 Year
  Sex: Female
  Weight: 102.3 kg

DRUGS (12)
  1. SEROQUEL [Suspect]
     Indication: SCHIZOPHRENIA
     Dosage: 300MG, 200MG
     Route: 048
  2. SEROQUEL [Suspect]
     Indication: BIPOLAR DISORDER
     Dosage: 300MG, 200MG
     Route: 048
  3. SEROQUEL [Suspect]
     Indication: DEPRESSION
     Dosage: 300MG, 200MG
     Route: 048
  4. GEODON [Concomitant]
  5. HALDOL [Concomitant]
  6. RISPERDAL [Concomitant]
  7. TRILAFON [Concomitant]
  8. ZYPREXA [Concomitant]
  9. ZOLOFT [Concomitant]
  10. PAXIL [Concomitant]
  11. METHADONE HCL [Concomitant]
     Dates: start: 19990101
  12. HEROIN [Concomitant]
     Dates: start: 19850101, end: 19870101

REACTIONS (1)
  - DIABETES MELLITUS [None]
